FAERS Safety Report 9424835 (Version 4)
Quarter: 2013Q4

REPORT INFORMATION
  Report Type: Spontaneous
  Country: US (occurrence: US)
  Receive Date: 20130729
  Receipt Date: 20131120
  Transmission Date: 20140711
  Serious: Yes (Hospitalization)
  Sender: FDA-Public Use
  Company Number: US-PFIZER INC-2013217461

PATIENT
  Age: 71 Year
  Sex: Female
  Weight: 74.83 kg

DRUGS (8)
  1. SUTENT [Suspect]
     Indication: GASTROINTESTINAL STROMAL TUMOUR
     Dosage: 50 MG, DAILY CYCLIC (4 WEEKS ON, 2 WEEKS OFF)
     Route: 048
     Dates: start: 20130725, end: 20130822
  2. SUTENT [Suspect]
     Dosage: 12.5MG DAILY ONE WEEK ON, ONE WEEK OFF
     Dates: start: 20130913
  3. MORPHINE [Concomitant]
     Dosage: UNK
  4. DILAUDID [Concomitant]
     Indication: PAIN
     Dosage: 2 MG, AS NEEDED
     Dates: start: 20100529
  5. DIPHENOXYLATE [Concomitant]
     Dosage: UNK
  6. PROTONIX [Concomitant]
     Dosage: UNK
  7. ASPIRIN [Concomitant]
     Dosage: UNK
  8. CITALOPRAM [Concomitant]
     Indication: DEPRESSION
     Dosage: 10 MG, DAILY
     Dates: start: 20120821

REACTIONS (24)
  - Blood glucose decreased [Recovering/Resolving]
  - Gastrointestinal disorder [Unknown]
  - Pulmonary thrombosis [Unknown]
  - Fatigue [Unknown]
  - Somnolence [Unknown]
  - Contusion [Unknown]
  - Pain in extremity [Unknown]
  - Stomatitis [Recovered/Resolved with Sequelae]
  - Balance disorder [Unknown]
  - Dizziness [Unknown]
  - Oral pain [Unknown]
  - Dyspnoea [Unknown]
  - Chest pain [Unknown]
  - Muscular weakness [Recovered/Resolved]
  - Faecal incontinence [Unknown]
  - Hypokinesia [Unknown]
  - Pancytopenia [Recovered/Resolved with Sequelae]
  - Gastrointestinal haemorrhage [Unknown]
  - Hypothyroidism [Unknown]
  - Paralysis [Unknown]
  - Haematochezia [Recovered/Resolved]
  - Fibrin D dimer increased [Unknown]
  - Blood creatinine abnormal [Recovering/Resolving]
  - Renal failure acute [Recovering/Resolving]
